FAERS Safety Report 24779473 (Version 1)
Quarter: 2024Q4

REPORT INFORMATION
  Report Type: Spontaneous
  Country: US (occurrence: US)
  Receive Date: 20241226
  Receipt Date: 20241226
  Transmission Date: 20250115
  Serious: Yes (Other)
  Sender: MYLAN
  Company Number: US-MYLANLABS-2024M1114454

PATIENT
  Sex: Male
  Weight: 93 kg

DRUGS (2)
  1. MUSE [Suspect]
     Active Substance: ALPROSTADIL
     Indication: Erectile dysfunction
     Dosage: 3XW (THREE TIMES A WEEK)
     Route: 066
     Dates: start: 20071003
  2. MUSE [Suspect]
     Active Substance: ALPROSTADIL
     Dosage: 3XW (THREE TIMES A WEEK)
     Route: 066
     Dates: start: 20090805

REACTIONS (2)
  - Peyronie^s disease [Not Recovered/Not Resolved]
  - Drug ineffective [Unknown]

NARRATIVE: CASE EVENT DATE: 20090101
